FAERS Safety Report 4601541-4 (Version None)
Quarter: 2005Q1

REPORT INFORMATION
  Report Type: 
  Country: None (occurrence: None)
  Receive Date: 20050308
  Receipt Date: 20050304
  Transmission Date: 20050727
  Serious: Yes (Life-Threatening)
  Sender: FDA-Public Use
  Company Number: PHBS2005NO03213

PATIENT
  Age: 31 Year
  Sex: Female

DRUGS (5)
  1. NOZINAN [Concomitant]
     Dosage: 25 MG, TID
     Route: 065
     Dates: start: 20000815
  2. PARACET [Concomitant]
     Dates: start: 20000815
  3. PARACET [Concomitant]
     Dates: start: 20000824
  4. AFIPRAN [Concomitant]
     Indication: NAUSEA
     Dosage: UNK, PRN
  5. TEGRETOL [Suspect]
     Dosage: 200 MG, TID
     Route: 048
     Dates: start: 20000815, end: 20000823

REACTIONS (28)
  - ACQUIRED EPIDERMOLYSIS BULLOSA [None]
  - BLOOD ALBUMIN DECREASED [None]
  - COLD SWEAT [None]
  - COMA [None]
  - CONJUNCTIVITIS [None]
  - CYSTITIS [None]
  - DERMATITIS BULLOUS [None]
  - DERMATITIS EXFOLIATIVE [None]
  - DRY SKIN [None]
  - EOSINOPHIL COUNT INCREASED [None]
  - EXANTHEM [None]
  - FACE OEDEMA [None]
  - FEELING ABNORMAL [None]
  - HEADACHE [None]
  - INCREASED UPPER AIRWAY SECRETION [None]
  - LYMPHADENOPATHY [None]
  - MUCOUS MEMBRANE DISORDER [None]
  - NAUSEA [None]
  - OEDEMA PERIPHERAL [None]
  - PALLOR [None]
  - PANCYTOPENIA [None]
  - PNEUMONIA [None]
  - PYREXIA [None]
  - RASH [None]
  - STEVENS-JOHNSON SYNDROME [None]
  - TOXIC EPIDERMAL NECROLYSIS [None]
  - TRACHEOSTOMY [None]
  - URINARY RETENTION [None]
